FAERS Safety Report 6292195-2 (Version None)
Quarter: 2009Q3

REPORT INFORMATION
  Report Type: 
  Country: None (occurrence: None)
  Receive Date: 20090731
  Receipt Date: 20090724
  Transmission Date: 20100115
  Serious: Yes (Death, Life-Threatening, Hospitalization)
  Sender: FDA-Public Use
  Company Number: FR-WYE-G04116209

PATIENT
  Age: 17 Year
  Sex: Female

DRUGS (19)
  1. TAZOCILLINE [Suspect]
     Indication: ESCHERICHIA BACTERAEMIA
     Dosage: UNKNOWN
     Route: 042
     Dates: start: 20081225
  2. VANCOMYCIN [Suspect]
     Indication: PNEUMONIA STAPHYLOCOCCAL
     Dosage: UNKNOWN
     Route: 042
     Dates: start: 20081201
  3. DIPRIVAN [Suspect]
     Indication: SEDATION
     Dosage: UNKNOWN
     Route: 042
     Dates: start: 20081218
  4. PENTOTHAL [Suspect]
     Indication: SEDATION
     Dosage: UNKNOWN
     Route: 042
     Dates: start: 20081208
  5. DEPAKENE [Suspect]
     Indication: STATUS EPILEPTICUS
     Dosage: UNKNOWN
     Route: 042
     Dates: start: 20081226
  6. KEPPRA [Suspect]
     Indication: STATUS EPILEPTICUS
     Dosage: UNKNOWN
     Route: 042
     Dates: start: 20081206
  7. AMIKLIN [Suspect]
     Indication: ESCHERICHIA BACTERAEMIA
     Dosage: UNKNOWN
     Route: 042
     Dates: start: 20081225
  8. URBANYL [Suspect]
     Indication: STATUS EPILEPTICUS
     Dosage: UNKNOWN
     Route: 042
     Dates: start: 20081215
  9. ENDOXAN [Suspect]
     Indication: SJOGREN'S SYNDROME
     Dosage: 750 MG EVERY 1 CYC
     Route: 042
     Dates: start: 20081225
  10. SUFENTA PRESERVATIVE FREE [Suspect]
     Indication: SEDATION
     Dosage: UNKNOWN
     Route: 042
     Dates: start: 20081129, end: 20081225
  11. NEUPOGEN [Concomitant]
     Dosage: UNKNOWN
     Dates: start: 20081201
  12. ACETAMINOPHEN [Concomitant]
     Dosage: UNKNOWN
  13. NEOSTIGMINE [Concomitant]
     Dosage: UNKNOWN
     Dates: start: 20081101
  14. NOREPINEPHRINE BITARTRATE [Concomitant]
     Dosage: UNKNOWN
  15. DILANTIN [Suspect]
     Indication: STATUS EPILEPTICUS
     Dosage: UNKNOWN
     Route: 042
     Dates: start: 20081209, end: 20081201
  16. PANTOPRAZOLE SODIUM [Suspect]
     Indication: PROPHYLAXIS AGAINST GASTROINTESTINAL ULCER
     Dosage: UNKNOWN
     Dates: start: 20081201
  17. DUPHALAC [Concomitant]
     Dosage: UNKNOWN
     Route: 048
  18. SOLU-MEDROL [Concomitant]
     Dosage: UNKNOWN
  19. GARDENAL [Suspect]
     Indication: STATUS EPILEPTICUS
     Dosage: UNKNOWN
     Route: 042
     Dates: start: 20081201

REACTIONS (6)
  - AGRANULOCYTOSIS [None]
  - CONDITION AGGRAVATED [None]
  - HISTIOCYTOSIS HAEMATOPHAGIC [None]
  - MULTI-ORGAN FAILURE [None]
  - PANCYTOPENIA [None]
  - SEPTIC SHOCK [None]
